FAERS Safety Report 6811064-X (Version None)
Quarter: 2010Q2

REPORT INFORMATION
  Report Type: 
  Country: None (occurrence: None)
  Receive Date: 20100630
  Receipt Date: 20081106
  Transmission Date: 20101027
  Serious: No
  Sender: FDA-Public Use
  Company Number: US-PFIZER INC-2008094570

PATIENT
  Sex: Female

DRUGS (6)
  1. ESTRING [Suspect]
     Indication: VULVOVAGINAL DRYNESS
     Dates: start: 20081001
  2. TERAZOL 1 [Concomitant]
     Indication: FUNGAL INFECTION
     Route: 067
  3. FOSAMAX [Concomitant]
     Indication: OSTEOPOROSIS
  4. PROTONIX [Concomitant]
     Indication: GASTROOESOPHAGEAL REFLUX DISEASE
  5. VITAMINS [Concomitant]
  6. MINERALS NOS [Concomitant]

REACTIONS (1)
  - FUNGAL INFECTION [None]
